FAERS Safety Report 9500708 (Version 3)
Quarter: 2013Q4

REPORT INFORMATION
  Report Type: Spontaneous
  Country: US (occurrence: None)
  Receive Date: 20130107
  Receipt Date: 20131226
  Transmission Date: 20140711
  Serious: Yes (Other)
  Sender: FDA-Public Use
  Company Number: PHEH2012US017283

PATIENT
  Age: 43 Year
  Sex: Female

DRUGS (2)
  1. GILENYA (FTY) CAPSULE, 0.5MG [Suspect]
     Indication: MULTIPLE SCLEROSIS
     Route: 048
     Dates: start: 20120823
  2. VITAMIN D3 (COLECALCIFEROL) [Concomitant]

REACTIONS (10)
  - Bone pain [None]
  - Musculoskeletal stiffness [None]
  - Stress [None]
  - Influenza like illness [None]
  - Joint stiffness [None]
  - Arthralgia [None]
  - Weight increased [None]
  - Alopecia [None]
  - Dizziness [None]
  - Inappropriate schedule of drug administration [None]
